FAERS Safety Report 21028269 (Version 2)
Quarter: 2022Q3

REPORT INFORMATION
  Report Type: Other
  Country: JP (occurrence: JP)
  Receive Date: 20220630
  Receipt Date: 20220803
  Transmission Date: 20221027
  Serious: Yes (Hospitalization, Other)
  Sender: FDA-Public Use
  Company Number: JP-Osmotica_Pharmaceutical_US_LLC-POI0573202200074

PATIENT
  Age: 40 Year
  Sex: Female

DRUGS (2)
  1. DIVIGEL [Suspect]
     Active Substance: ESTRADIOL
     Indication: Luteal phase deficiency
     Dosage: UNKNOWN
     Route: 065
     Dates: start: 2002, end: 2022
  2. DYDROGESTERONE [Suspect]
     Active Substance: DYDROGESTERONE
     Indication: Luteal phase deficiency
     Dosage: UNKNOWN
     Route: 065
     Dates: start: 2002, end: 2022

REACTIONS (2)
  - Budd-Chiari syndrome [Not Recovered/Not Resolved]
  - Gastric varices [Unknown]

NARRATIVE: CASE EVENT DATE: 20220101
